FAERS Safety Report 8798480 (Version 1)
Quarter: 2012Q4

REPORT INFORMATION
  Report Type: Report from Study
  Country: JP (occurrence: JP)
  Receive Date: 20120920
  Receipt Date: 20120920
  Transmission Date: 20130627
  Serious: Yes (Hospitalization, Other)
  Sender: FDA-Public Use
  Company Number: JP-JNJFOC-20120907721

PATIENT
  Age: 38 Year
  Sex: Male
  Weight: 65 kg

DRUGS (77)
  1. REMICADE [Suspect]
     Indication: UVEITIS
     Route: 042
     Dates: start: 20090108
  2. REMICADE [Suspect]
     Indication: UVEITIS
     Route: 042
     Dates: start: 20081106
  3. REMICADE [Suspect]
     Indication: UVEITIS
     Route: 042
     Dates: start: 20080911
  4. REMICADE [Suspect]
     Indication: UVEITIS
     Route: 042
     Dates: start: 20080717
  5. REMICADE [Suspect]
     Indication: UVEITIS
     Route: 042
     Dates: start: 20080522
  6. REMICADE [Suspect]
     Indication: UVEITIS
     Route: 042
     Dates: start: 20080328
  7. REMICADE [Suspect]
     Indication: UVEITIS
     Route: 042
     Dates: start: 20080131
  8. REMICADE [Suspect]
     Indication: UVEITIS
     Route: 042
     Dates: start: 20071203
  9. REMICADE [Suspect]
     Indication: UVEITIS
     Route: 042
     Dates: start: 20071004
  10. REMICADE [Suspect]
     Indication: UVEITIS
     Route: 042
     Dates: start: 20070810
  11. REMICADE [Suspect]
     Indication: UVEITIS
     Route: 042
     Dates: start: 20070625
  12. REMICADE [Suspect]
     Indication: UVEITIS
     Route: 042
     Dates: start: 20070419
  13. REMICADE [Suspect]
     Indication: UVEITIS
     Route: 042
     Dates: start: 20090305
  14. REMICADE [Suspect]
     Indication: UVEITIS
     Route: 042
     Dates: start: 20090430
  15. REMICADE [Suspect]
     Indication: UVEITIS
     Route: 042
     Dates: start: 20070322
  16. REMICADE [Suspect]
     Indication: UVEITIS
     Route: 042
     Dates: start: 20070308
  17. REMICADE [Suspect]
     Indication: BEHCET^S SYNDROME
     Route: 042
     Dates: start: 20070322
  18. REMICADE [Suspect]
     Indication: BEHCET^S SYNDROME
     Route: 042
     Dates: start: 20090305
  19. REMICADE [Suspect]
     Indication: BEHCET^S SYNDROME
     Route: 042
     Dates: start: 20090108
  20. REMICADE [Suspect]
     Indication: BEHCET^S SYNDROME
     Route: 042
     Dates: start: 20081106
  21. REMICADE [Suspect]
     Indication: BEHCET^S SYNDROME
     Route: 042
     Dates: start: 20080911
  22. REMICADE [Suspect]
     Indication: BEHCET^S SYNDROME
     Route: 042
     Dates: start: 20080717
  23. REMICADE [Suspect]
     Indication: BEHCET^S SYNDROME
     Route: 042
     Dates: start: 20080522
  24. REMICADE [Suspect]
     Indication: BEHCET^S SYNDROME
     Route: 042
     Dates: start: 20080328
  25. REMICADE [Suspect]
     Indication: BEHCET^S SYNDROME
     Route: 042
     Dates: start: 20080131
  26. REMICADE [Suspect]
     Indication: BEHCET^S SYNDROME
     Route: 042
     Dates: start: 20071203
  27. REMICADE [Suspect]
     Indication: BEHCET^S SYNDROME
     Route: 042
     Dates: start: 20071004
  28. REMICADE [Suspect]
     Indication: BEHCET^S SYNDROME
     Route: 042
     Dates: start: 20070810
  29. REMICADE [Suspect]
     Indication: BEHCET^S SYNDROME
     Route: 042
     Dates: start: 20070625
  30. REMICADE [Suspect]
     Indication: BEHCET^S SYNDROME
     Route: 042
     Dates: start: 20070419
  31. REMICADE [Suspect]
     Indication: BEHCET^S SYNDROME
     Route: 042
     Dates: start: 20090430
  32. REMICADE [Suspect]
     Indication: BEHCET^S SYNDROME
     Route: 042
     Dates: start: 20070308
  33. COLCHICINE [Suspect]
     Indication: BEHCET^S SYNDROME
     Route: 048
     Dates: start: 20060206
  34. COLCHICINE [Suspect]
     Indication: BEHCET^S SYNDROME
     Route: 048
     Dates: start: 20051014, end: 20060128
  35. COLCHICINE [Suspect]
     Indication: BEHCET^S SYNDROME
     Route: 048
     Dates: start: 20060129, end: 20080228
  36. PREDNISOLONE [Suspect]
     Indication: BEHCET^S SYNDROME
     Route: 048
     Dates: start: 20080425, end: 20080522
  37. PREDNISOLONE [Suspect]
     Indication: BEHCET^S SYNDROME
     Route: 048
     Dates: start: 20080329, end: 20080424
  38. PREDNISOLONE [Suspect]
     Indication: BEHCET^S SYNDROME
     Route: 048
     Dates: start: 20080229, end: 20090328
  39. PREDNISOLONE [Suspect]
     Indication: BEHCET^S SYNDROME
     Route: 048
     Dates: start: 20071102, end: 20080228
  40. PREDNISOLONE [Suspect]
     Indication: BEHCET^S SYNDROME
     Route: 048
     Dates: start: 20070907, end: 20071101
  41. PREDNISOLONE [Suspect]
     Indication: BEHCET^S SYNDROME
     Route: 048
     Dates: start: 20070616, end: 20070906
  42. PREDNISOLONE [Suspect]
     Indication: BEHCET^S SYNDROME
     Route: 048
     Dates: start: 20061013, end: 20070615
  43. PREDNISOLONE [Suspect]
     Indication: BEHCET^S SYNDROME
     Route: 048
     Dates: start: 20060819, end: 20061012
  44. MYDRIN-P [Concomitant]
     Indication: BEHCET^S SYNDROME
     Dosage: once daily for both eyes
     Route: 031
     Dates: start: 20080104
  45. ROCALTROL [Concomitant]
     Indication: OSTEOPOROSIS
     Route: 048
  46. LENDORMIN [Concomitant]
     Indication: INSOMNIA
     Route: 048
  47. LAC-B [Concomitant]
     Indication: DIARRHOEA
     Route: 048
  48. TAKEPRON [Concomitant]
     Indication: GASTROOESOPHAGEAL REFLUX DISEASE
     Route: 048
  49. GASMOTIN [Concomitant]
     Indication: GASTROOESOPHAGEAL REFLUX DISEASE
     Route: 048
  50. ULCERLMIN [Concomitant]
     Indication: GASTROOESOPHAGEAL REFLUX DISEASE
     Route: 048
  51. CRAVIT [Concomitant]
     Indication: SEASONAL ALLERGY
     Route: 031
  52. DICLOD [Concomitant]
     Indication: SEASONAL ALLERGY
     Route: 031
  53. RINDERON A [Concomitant]
     Indication: SEASONAL ALLERGY
     Route: 031
  54. SANCOBA [Concomitant]
     Indication: SEASONAL ALLERGY
     Route: 031
  55. EBASTEL [Concomitant]
     Indication: SEASONAL ALLERGY
     Route: 048
  56. KENALOG [Concomitant]
     Indication: BEHCET^S SYNDROME
  57. ISODINE [Concomitant]
     Indication: BEHCET^S SYNDROME
  58. UREPEARL [Concomitant]
     Indication: DRY SKIN
  59. POLARAMINE (DEXCHLORPHENIRAMINE MALEATE) [Concomitant]
     Indication: PROPHYLAXIS
     Route: 048
     Dates: start: 20080717, end: 20080717
  60. POLARAMINE (DEXCHLORPHENIRAMINE MALEATE) [Concomitant]
     Indication: PROPHYLAXIS
     Route: 048
     Dates: start: 20080328, end: 20080328
  61. POLARAMINE (DEXCHLORPHENIRAMINE MALEATE) [Concomitant]
     Indication: PROPHYLAXIS
     Route: 048
     Dates: start: 20080522, end: 20080522
  62. POLARAMINE (DEXCHLORPHENIRAMINE MALEATE) [Concomitant]
     Indication: PROPHYLAXIS
     Route: 048
     Dates: start: 20080911, end: 20080911
  63. POLARAMINE (DEXCHLORPHENIRAMINE MALEATE) [Concomitant]
     Indication: PROPHYLAXIS
     Route: 048
     Dates: start: 20081106, end: 20081106
  64. POLARAMINE (DEXCHLORPHENIRAMINE MALEATE) [Concomitant]
     Indication: PROPHYLAXIS
     Route: 048
     Dates: start: 20090108, end: 20090108
  65. POLARAMINE (DEXCHLORPHENIRAMINE MALEATE) [Concomitant]
     Indication: PROPHYLAXIS
     Route: 048
     Dates: start: 20090305, end: 20090305
  66. RINDERON [Concomitant]
     Indication: BEHCET^S SYNDROME
     Dosage: two times a day for right eye and four times for left eye
     Route: 031
     Dates: start: 20080718, end: 20080813
  67. RINDERON [Concomitant]
     Indication: BEHCET^S SYNDROME
     Dosage: both eyes
     Route: 031
     Dates: start: 20080404, end: 20080522
  68. RINDERON [Concomitant]
     Indication: BEHCET^S SYNDROME
     Dosage: both eyes
     Route: 031
     Dates: start: 20080523, end: 20080717
  69. RINDERON [Concomitant]
     Indication: BEHCET^S SYNDROME
     Dosage: two times a day for both eyes
     Route: 031
     Dates: start: 20080814
  70. SOLUCORTEF [Concomitant]
     Indication: PROPHYLAXIS
     Route: 065
     Dates: start: 20081106, end: 20081106
  71. SOLUCORTEF [Concomitant]
     Indication: PROPHYLAXIS
     Route: 065
     Dates: start: 20090305, end: 20090305
  72. SOLUCORTEF [Concomitant]
     Indication: PROPHYLAXIS
     Route: 065
     Dates: start: 20090108, end: 20090108
  73. MYSLEE [Concomitant]
     Indication: INSOMNIA
     Route: 048
  74. GASTER [Concomitant]
     Indication: GASTROOESOPHAGEAL REFLUX DISEASE
     Route: 048
  75. LEVOFLOXACIN [Concomitant]
     Indication: PHARYNGITIS
     Route: 048
     Dates: start: 20090512, end: 20090517
  76. LOXOPROFEN [Concomitant]
     Indication: PRODUCT USED FOR UNKNOWN INDICATION
     Route: 048
     Dates: start: 20090518
  77. GASTER [Concomitant]
     Route: 048
     Dates: start: 20090518

REACTIONS (9)
  - Cataract [Unknown]
  - Cytomegalovirus infection [Recovering/Resolving]
  - Antinuclear antibody increased [Unknown]
  - DNA antibody positive [Not Recovered/Not Resolved]
  - Blood creatine phosphokinase increased [Recovered/Resolved]
  - Hepatic function abnormal [Recovering/Resolving]
  - Gingivitis [Recovered/Resolved]
  - Urticaria [Recovered/Resolved]
  - Infusion related reaction [Recovered/Resolved]
